FAERS Safety Report 9918630 (Version 1)
Quarter: 2014Q1

REPORT INFORMATION
  Report Type: Report from Study
  Country: US (occurrence: US)
  Receive Date: 20140224
  Receipt Date: 20140224
  Transmission Date: 20141002
  Serious: Yes (Other)
  Sender: FDA-Public Use
  Company Number: US-ROCHE-1329659

PATIENT
  Age: 82 Year
  Sex: Female

DRUGS (16)
  1. LUCENTIS [Suspect]
     Indication: AGE-RELATED MACULAR DEGENERATION
     Route: 050
     Dates: start: 20091116
  2. LUCENTIS [Suspect]
     Indication: RETINAL OEDEMA
  3. AVASTIN [Suspect]
     Indication: AGE-RELATED MACULAR DEGENERATION
     Dosage: OD
     Route: 050
     Dates: start: 20080915, end: 20091019
  4. AVASTIN [Suspect]
     Indication: RETINAL OEDEMA
  5. LIPITOR [Concomitant]
  6. NIFEDIPINE [Concomitant]
  7. NITRO PATCH [Concomitant]
  8. TRIAM-A [Concomitant]
  9. TUMS [Concomitant]
  10. WARFARIN SODIUM [Concomitant]
  11. ZYMAR [Concomitant]
     Dosage: FOR 2 DAYS BEFORE AND 4 DAYS AFTER EYE INJECTION
     Route: 065
     Dates: start: 20091116, end: 20100510
  12. ZYMAR [Concomitant]
     Dosage: OD
     Route: 065
     Dates: start: 20100301, end: 20101122
  13. ZYMAR [Concomitant]
     Dosage: X 4 DAYS
     Route: 065
     Dates: start: 20080915, end: 20091005
  14. PHENYLEPHRINE [Concomitant]
  15. TROPICAMIDE [Concomitant]
  16. PROPARACAINE [Concomitant]

REACTIONS (14)
  - Macular oedema [Unknown]
  - Herpes zoster [Unknown]
  - Dyspnoea [Unknown]
  - Abdominal pain [Unknown]
  - Arthralgia [Unknown]
  - Swelling [Unknown]
  - Musculoskeletal stiffness [Unknown]
  - Back pain [Unknown]
  - Memory impairment [Unknown]
  - Erythema [Unknown]
  - Choroidal neovascularisation [Unknown]
  - Off label use [Unknown]
  - Diabetic retinopathy [Unknown]
  - Age-related macular degeneration [Unknown]
